FAERS Safety Report 14236058 (Version 2)
Quarter: 2017Q4

REPORT INFORMATION
  Report Type: Report from Study
  Country: US (occurrence: US)
  Receive Date: 20171129
  Receipt Date: 20171129
  Transmission Date: 20180321
  Serious: Yes (Other)
  Sender: FDA-Public Use
  Company Number: PHEH2017US037830

PATIENT
  Sex: Male

DRUGS (1)
  1. CICLOSPORIN [Suspect]
     Active Substance: CYCLOSPORINE
     Indication: TRANSPLANT
     Route: 065

REACTIONS (7)
  - Cyst [Unknown]
  - Pancreatic cyst [Unknown]
  - Dysphagia [Unknown]
  - Hepatic cyst [Unknown]
  - Infection [Unknown]
  - Infection susceptibility increased [Unknown]
  - Congenital cystic kidney disease [Unknown]
